FAERS Safety Report 8602086-7 (Version None)
Quarter: 2012Q3

REPORT INFORMATION
  Report Type: 
  Country: None (occurrence: None)
  Receive Date: 20120817
  Receipt Date: 20120810
  Transmission Date: 20120928
  Serious: Yes (Other)
  Sender: FDA-Public Use
  Company Number: JP-PFIZER INC-2012197478

PATIENT
  Age: 80 Year
  Sex: Female

DRUGS (3)
  1. ZOLOFT [Suspect]
     Dosage: 25 MG DAILY
  2. ABILIFY [Concomitant]
     Dosage: UNK
  3. UNDEPRE [Concomitant]
     Dosage: UNK

REACTIONS (2)
  - TACHYCARDIA [None]
  - OBSTRUCTIVE AIRWAYS DISORDER [None]
